FAERS Safety Report 17808914 (Version 3)
Quarter: 2021Q1

REPORT INFORMATION
  Report Type: Spontaneous
  Country: US (occurrence: US)
  Receive Date: 20200520
  Receipt Date: 20210113
  Transmission Date: 20210419
  Serious: Yes (Hospitalization, Other)
  Sender: FDA-Public Use
  Company Number: US-MYLANLABS-2020M1049927

PATIENT
  Age: 22 Year
  Sex: Female

DRUGS (8)
  1. VANCOMYCIN [Interacting]
     Active Substance: VANCOMYCIN
     Indication: ANTIBIOTIC THERAPY
  2. VANCOMYCIN [Interacting]
     Active Substance: VANCOMYCIN
     Indication: BRONCHIECTASIS
  3. TOBRAMYCIN. [Interacting]
     Active Substance: TOBRAMYCIN
     Indication: ANTIBIOTIC THERAPY
  4. GENTAMICIN. [Interacting]
     Active Substance: GENTAMICIN
     Indication: EVIDENCE BASED TREATMENT
     Route: 065
  5. GENTAMICIN. [Interacting]
     Active Substance: GENTAMICIN
     Indication: ANTIBIOTIC THERAPY
  6. TOBRAMYCIN. [Interacting]
     Active Substance: TOBRAMYCIN
     Indication: BRONCHIECTASIS
  7. TOBRAMYCIN. [Interacting]
     Active Substance: TOBRAMYCIN
     Indication: EVIDENCE BASED TREATMENT
     Dosage: 180 MILLIGRAM, QD
     Route: 042
  8. VANCOMYCIN [Suspect]
     Active Substance: VANCOMYCIN
     Indication: EVIDENCE BASED TREATMENT
     Dosage: 1 GRAM, TID
     Route: 042

REACTIONS (10)
  - Nausea [Unknown]
  - Nephropathy toxic [Unknown]
  - Product use in unapproved indication [Unknown]
  - Anuria [Recovered/Resolved]
  - Decreased appetite [Unknown]
  - Renal tubular necrosis [Recovered/Resolved]
  - Oedema peripheral [Unknown]
  - Drug interaction [Recovered/Resolved]
  - Acute kidney injury [Recovered/Resolved]
  - Toxicity to various agents [Recovered/Resolved]
